FAERS Safety Report 4977197-8 (Version None)
Quarter: 2006Q2

REPORT INFORMATION
  Report Type: 
  Country: None (occurrence: None)
  Receive Date: 20060419
  Receipt Date: 20050930
  Transmission Date: 20061013
  Serious: Yes (Hospitalization)
  Sender: FDA-Public Use
  Company Number: US-MERCK-0510USA00266

PATIENT
  Age: 54 Year
  Sex: Female
  Weight: 50 kg

DRUGS (3)
  1. VIOXX [Suspect]
     Indication: ARTHRITIS
     Route: 048
     Dates: start: 20020701
  2. GLUCOPHAGE [Concomitant]
     Route: 048
  3. GLYBURIDE [Concomitant]
     Route: 065

REACTIONS (8)
  - ANXIETY [None]
  - CEREBRAL INFARCTION [None]
  - CEREBROVASCULAR ACCIDENT [None]
  - DYSPNOEA [None]
  - HEADACHE [None]
  - ISCHAEMIC STROKE [None]
  - NASOPHARYNGITIS [None]
  - UPPER RESPIRATORY TRACT INFECTION [None]
